FAERS Safety Report 6316207-2 (Version None)
Quarter: 2009Q3

REPORT INFORMATION
  Report Type: 
  Country: None (occurrence: None)
  Receive Date: 20090819
  Receipt Date: 20090819
  Transmission Date: 20100115
  Serious: No
  Sender: FDA-Public Use
  Company Number: None

PATIENT
  Sex: Female

DRUGS (1)
  1. NYSTATIN + TRIAMCINOLONE ACETONIDE [Suspect]
     Dosage: 30 GRAMS OTHER
     Dates: start: 20090703, end: 20090710

REACTIONS (3)
  - RASH MACULO-PAPULAR [None]
  - RASH PRURITIC [None]
  - TREATMENT NONCOMPLIANCE [None]
